FAERS Safety Report 8868047 (Version 1)
Quarter: 2012Q4

REPORT INFORMATION
  Report Type: 
  Country: US (occurrence: US)
  Receive Date: 20121025
  Receipt Date: 20121025
  Transmission Date: 20130627
  Serious: No
  Sender: FDA-Public Use
  Company Number: US-AMGEN-USASP2012019180

PATIENT
  Age: 53 Year
  Sex: Male
  Weight: 124.72 kg

DRUGS (7)
  1. ENBREL [Suspect]
     Indication: PRODUCT USED FOR UNKNOWN INDICATION
     Dosage: 50 mg, qwk
     Route: 058
  2. VITAMIN D /00107901/ [Concomitant]
     Dosage: 2000 IU, UNK
  3. BENAZEPRIL [Concomitant]
     Dosage: 40 mg, UNK
  4. METFORMIN [Concomitant]
     Dosage: 500 mg, UNK
  5. ALLOPURINOL [Concomitant]
     Dosage: 100 mg, UNK
  6. NEURONTIN [Concomitant]
     Dosage: 300 mg, UNK
  7. ISONIAZID [Concomitant]
     Dosage: 100 mg, UNK

REACTIONS (2)
  - Somnolence [Recovered/Resolved]
  - Injection site pain [Recovered/Resolved]
